FAERS Safety Report 15652130 (Version 4)
Quarter: 2023Q4

REPORT INFORMATION
  Report Type: Spontaneous
  Country: US (occurrence: US)
  Receive Date: 20181123
  Receipt Date: 20231127
  Transmission Date: 20240110
  Serious: Yes (Other)
  Sender: FDA-Public Use
  Company Number: US-GILEAD-2018-0376062

PATIENT
  Age: 45 Year
  Sex: Female
  Weight: 47.619 kg

DRUGS (40)
  1. ATRIPLA [Suspect]
     Active Substance: EFAVIRENZ\EMTRICITABINE\TENOFOVIR DISOPROXIL FUMARATE
     Indication: HIV infection
     Dosage: UNK
     Route: 048
     Dates: start: 2011, end: 2013
  2. ATRIPLA [Suspect]
     Active Substance: EFAVIRENZ\EMTRICITABINE\TENOFOVIR DISOPROXIL FUMARATE
     Dosage: UNK
     Route: 048
     Dates: start: 20060828, end: 20150319
  3. STRIBILD [Suspect]
     Active Substance: COBICISTAT\ELVITEGRAVIR\EMTRICITABINE\TENOFOVIR DISOPROXIL FUMARATE
     Indication: HIV infection
     Dosage: UNK
     Route: 048
     Dates: start: 2013, end: 2014
  4. STRIBILD [Suspect]
     Active Substance: COBICISTAT\ELVITEGRAVIR\EMTRICITABINE\TENOFOVIR DISOPROXIL FUMARATE
     Dosage: UNK
     Route: 048
     Dates: start: 20150310, end: 20150710
  5. VIREAD [Suspect]
     Active Substance: TENOFOVIR DISOPROXIL FUMARATE
     Indication: HIV infection
     Dosage: UNK
     Route: 065
     Dates: start: 20050610
  6. VIREAD [Suspect]
     Active Substance: TENOFOVIR DISOPROXIL FUMARATE
     Dosage: UNK
     Route: 065
     Dates: start: 20050610, end: 200604
  7. TRUVADA [Suspect]
     Active Substance: EMTRICITABINE\TENOFOVIR DISOPROXIL FUMARATE
     Indication: HIV infection
     Dosage: UNK
     Route: 065
     Dates: start: 20060407
  8. TRUVADA [Suspect]
     Active Substance: EMTRICITABINE\TENOFOVIR DISOPROXIL FUMARATE
     Dosage: UNK
     Route: 065
     Dates: start: 20060407, end: 200608
  9. BIKTARVY [Concomitant]
     Active Substance: BICTEGRAVIR SODIUM\EMTRICITABINE\TENOFOVIR ALAFENAMIDE FUMARATE
  10. GENVOYA [Concomitant]
     Active Substance: COBICISTAT\ELVITEGRAVIR\EMTRICITABINE\TENOFOVIR ALAFENAMIDE FUMARATE
  11. METFORMIN [Concomitant]
     Active Substance: METFORMIN HYDROCHLORIDE
     Dosage: UNK
     Dates: start: 201011
  12. METOPROLOL [Concomitant]
     Active Substance: METOPROLOL
     Dosage: UNK
     Dates: start: 200410
  13. LISINOPRIL [Concomitant]
     Active Substance: LISINOPRIL
     Dosage: UNK
     Dates: start: 200410
  14. ROSUVASTATIN [Concomitant]
     Active Substance: ROSUVASTATIN
     Dosage: UNK
     Dates: start: 200410
  15. OMEPRAZOLE [Concomitant]
     Active Substance: OMEPRAZOLE
     Dosage: UNK
     Dates: start: 201409
  16. FLOVENT [Concomitant]
     Active Substance: FLUTICASONE PROPIONATE
     Dosage: UNK
     Dates: start: 200503
  17. EPIVIR [Concomitant]
     Active Substance: LAMIVUDINE
  18. LEXIVA [Concomitant]
     Active Substance: FOSAMPRENAVIR CALCIUM
  19. NORVIR [Concomitant]
     Active Substance: RITONAVIR
  20. SUSTIVA [Concomitant]
     Active Substance: EFAVIRENZ
  21. SYMTUZA [Concomitant]
     Active Substance: COBICISTAT\DARUNAVIR\EMTRICITABINE\TENOFOVIR ALAFENAMIDE
  22. TRIUMEQ [Concomitant]
     Active Substance: ABACAVIR SULFATE\DOLUTEGRAVIR SODIUM\LAMIVUDINE
     Indication: HIV infection
  23. TRIZIVIR [Concomitant]
     Active Substance: ABACAVIR SULFATE\LAMIVUDINE\ZIDOVUDINE
  24. VIRACEPT [Concomitant]
     Active Substance: NELFINAVIR MESYLATE
  25. ALBUTEROL SULFATE [Concomitant]
     Active Substance: ALBUTEROL SULFATE
     Dosage: UNK
     Dates: start: 20100226
  26. AMOXICILLIN\CLAVULANATE POTASSIUM [Concomitant]
     Active Substance: AMOXICILLIN\CLAVULANATE POTASSIUM
  27. ASPIRIN [Concomitant]
     Active Substance: ASPIRIN
  28. AUGMENTIN [Concomitant]
     Active Substance: AMOXICILLIN\CLAVULANATE POTASSIUM
  29. AZITHROMYCIN [Concomitant]
     Active Substance: AZITHROMYCIN
  30. AZMACORT [Concomitant]
     Active Substance: TRIAMCINOLONE ACETONIDE
  31. BACTRIM DS [Concomitant]
     Active Substance: SULFAMETHOXAZOLE\TRIMETHOPRIM
  32. BENZONATATE [Concomitant]
     Active Substance: BENZONATATE
  33. BIAXIN [Concomitant]
     Active Substance: CLARITHROMYCIN
  34. CIPROFLOXACIN [Concomitant]
     Active Substance: CIPROFLOXACIN
  35. CRESTOR [Concomitant]
     Active Substance: ROSUVASTATIN CALCIUM
  36. CYPROHEPTADINE [Concomitant]
     Active Substance: CYPROHEPTADINE
  37. DEPO-PROVERA [Concomitant]
     Active Substance: MEDROXYPROGESTERONE ACETATE
  38. VIRAMUNE [Concomitant]
     Active Substance: NEVIRAPINE
     Dosage: UNK
  39. ZIAGEN [Concomitant]
     Active Substance: ABACAVIR SULFATE
     Dosage: UNK
  40. AMOXICILLIN [Concomitant]
     Active Substance: AMOXICILLIN
     Dosage: UNK

REACTIONS (9)
  - Osteoporosis [Not Recovered/Not Resolved]
  - Bone demineralisation [Unknown]
  - Pain [Not Recovered/Not Resolved]
  - Emotional distress [Not Recovered/Not Resolved]
  - Anxiety [Not Recovered/Not Resolved]
  - Anhedonia [Not Recovered/Not Resolved]
  - Economic problem [Unknown]
  - Osteopenia [Not Recovered/Not Resolved]
  - Gait disturbance [Not Recovered/Not Resolved]

NARRATIVE: CASE EVENT DATE: 20130513
